FAERS Safety Report 5385405-7 (Version None)
Quarter: 2007Q3

REPORT INFORMATION
  Report Type: 
  Country: None (occurrence: None)
  Receive Date: 20070705
  Receipt Date: 20070705
  Transmission Date: 20080115
  Serious: Yes (Hospitalization)
  Sender: FDA-Public Use
  Company Number: None

PATIENT
  Age: 75 Year
  Sex: Male

DRUGS (1)
  1. PRAVASTATIN [Suspect]
     Indication: BLOOD CHOLESTEROL
     Dosage: 1 TABLET BY MOUTH DAILY
     Route: 048
     Dates: start: 20060601, end: 20070301

REACTIONS (2)
  - FLUID RETENTION [None]
  - RHABDOMYOLYSIS [None]
